FAERS Safety Report 10615943 (Version 3)
Quarter: 2015Q2

REPORT INFORMATION
  Report Type: Spontaneous
  Country: IL (occurrence: IL)
  Receive Date: 20141201
  Receipt Date: 20150416
  Transmission Date: 20150821
  Serious: Yes (Hospitalization)
  Sender: FDA-Public Use
  Company Number: IL-JNJFOC-20141116891

PATIENT
  Sex: Female

DRUGS (1)
  1. SIMPONI [Suspect]
     Active Substance: GOLIMUMAB
     Indication: RHEUMATOID ARTHRITIS
     Route: 058
     Dates: start: 20140909

REACTIONS (6)
  - Cerebrovascular accident [Recovered/Resolved]
  - Syncope [Recovered/Resolved]
  - Asthenia [Not Recovered/Not Resolved]
  - Pain in extremity [Recovered/Resolved]
  - Bronchitis viral [Recovered/Resolved]
  - Dizziness [Not Recovered/Not Resolved]

NARRATIVE: CASE EVENT DATE: 2014
